FAERS Safety Report 4700448-1 (Version None)
Quarter: 2005Q2

REPORT INFORMATION
  Report Type: 
  Country: None (occurrence: None)
  Receive Date: 20050627
  Receipt Date: 20050615
  Transmission Date: 20051028
  Serious: Yes (Other)
  Sender: FDA-Public Use
  Company Number: JP-BRISTOL-MYERS SQUIBB COMPANY-13006937

PATIENT
  Age: 66 Year
  Sex: Male

DRUGS (3)
  1. ZERIT [Suspect]
     Indication: HIV INFECTION
     Route: 048
  2. VIDEX EC [Suspect]
     Indication: HIV INFECTION
     Route: 048
  3. VIRACEPT [Concomitant]
     Indication: HIV INFECTION
     Route: 048

REACTIONS (1)
  - BLOOD CREATININE INCREASED [None]
